FAERS Safety Report 9689809 (Version 2)
Quarter: 2013Q4

REPORT INFORMATION
  Report Type: Report from Study
  Country: CL (occurrence: CL)
  Receive Date: 20131115
  Receipt Date: 20131115
  Transmission Date: 20140711
  Serious: Yes (Hospitalization)
  Sender: FDA-Public Use
  Company Number: CL-BRISTOL-MYERS SQUIBB COMPANY-19190701

PATIENT
  Age: 45 Year
  Sex: Female

DRUGS (10)
  1. ORENCIA [Suspect]
     Indication: RHEUMATOID ARTHRITIS
     Dosage: 24FEB2010-INTERRUPTED ON:1SEP13?VIALS
     Route: 042
     Dates: start: 20100122
  2. PREDNISONE [Concomitant]
  3. PROFENID [Concomitant]
  4. OMEPRAZOLE [Concomitant]
  5. LOSARTAN [Concomitant]
  6. GLAFORNIL [Concomitant]
  7. HYDROXYZINE [Concomitant]
  8. PLAQUENIL [Concomitant]
  9. SERETIDE [Concomitant]
  10. BERODUAL [Concomitant]

REACTIONS (6)
  - Abdominal pain upper [Recovered/Resolved]
  - Nausea [Recovered/Resolved]
  - Vomiting [Recovered/Resolved]
  - Headache [Recovered/Resolved]
  - Bronchitis [Recovered/Resolved]
  - Diarrhoea [Recovered/Resolved]
